FAERS Safety Report 7032392-1 (Version None)
Quarter: 2010Q4

REPORT INFORMATION
  Report Type: 
  Country: None (occurrence: None)
  Receive Date: 20101007
  Receipt Date: 20101001
  Transmission Date: 20110411
  Serious: Yes (Hospitalization, Disabling, Other)
  Sender: FDA-Public Use
  Company Number: US-TEVA-250472USA

PATIENT
  Sex: Female

DRUGS (2)
  1. ALENDRONAT SODIUM, TABLETS, 5MG, 10MG, 40MG, 35MG, 70MG [Suspect]
  2. ALENDRONATE SODIUM [Suspect]

REACTIONS (9)
  - BONE DISORDER [None]
  - ECONOMIC PROBLEM [None]
  - EMOTIONAL DISTRESS [None]
  - FEMUR FRACTURE [None]
  - FRACTURE DISPLACEMENT [None]
  - MENTAL DISORDER [None]
  - MULTIPLE INJURIES [None]
  - PAIN [None]
  - STRESS FRACTURE [None]
